FAERS Safety Report 14750503 (Version 1)
Quarter: 2018Q2

REPORT INFORMATION
  Report Type: Spontaneous
  Country: US (occurrence: US)
  Receive Date: 20180406
  Receipt Date: 20180406
  Transmission Date: 20180711
  Serious: No
  Sender: FDA-Public Use
  Company Number: None

PATIENT
  Age: 26 Year
  Sex: Female

DRUGS (4)
  1. PHENAZOPYID [Concomitant]
  2. METRONIDAZOL [Concomitant]
     Active Substance: METRONIDAZOLE
  3. GLATIRAMER [Suspect]
     Active Substance: GLATIRAMER
     Indication: MULTIPLE SCLEROSIS
     Route: 058
     Dates: start: 20180315
  4. NITROFURANTN [Concomitant]
     Active Substance: NITROFURANTOIN

REACTIONS (3)
  - Diplopia [None]
  - Dizziness [None]
  - Urinary tract disorder [None]

NARRATIVE: CASE EVENT DATE: 20180319
